FAERS Safety Report 7639598-9 (Version None)
Quarter: 2011Q3

REPORT INFORMATION
  Report Type: 
  Country: None (occurrence: None)
  Receive Date: 20110721
  Receipt Date: 20110711
  Transmission Date: 20111222
  Serious: Yes (Life-Threatening, Hospitalization, Other)
  Sender: FDA-Public Use
  Company Number: IDA-00561

PATIENT
  Age: 47 Year
  Sex: Male

DRUGS (7)
  1. OCTENIDINE DIHYDROCHLORIDE+PROPANOL (OCTENIDINE, PROPANOL) [Suspect]
     Dosage: 10 MG BID
     Route: 048
     Dates: start: 20051214, end: 20060126
  2. SUNITINIB MALATE [Suspect]
     Indication: RENAL CELL CARCINOMA
     Dosage: 50 MG DAILY
     Route: 048
     Dates: start: 20060113, end: 20060125
  3. PROZAC [Concomitant]
  4. (ZOPICLONE) [Concomitant]
  5. GABAPENTIN [Concomitant]
  6. ORAMORPH SR [Concomitant]
  7. MORPHINE SULFATE [Concomitant]

REACTIONS (18)
  - PARTIAL SEIZURES [None]
  - CARDIAC ENZYMES INCREASED [None]
  - BLOOD PRESSURE FLUCTUATION [None]
  - ABDOMINAL PAIN UPPER [None]
  - HYPOCALCAEMIA [None]
  - TORSADE DE POINTES [None]
  - ABDOMINAL PAIN [None]
  - CARDIAC ARREST [None]
  - PERICARDIAL EFFUSION [None]
  - NAUSEA [None]
  - VENTRICULAR TACHYCARDIA [None]
  - VOMITING [None]
  - TACHYCARDIA [None]
  - HAEMATEMESIS [None]
  - INTRACRANIAL PRESSURE INCREASED [None]
  - DIARRHOEA [None]
  - ELECTROCARDIOGRAM QT PROLONGED [None]
  - PUPILS UNEQUAL [None]
